FAERS Safety Report 10032677 (Version 2)
Quarter: 2014Q1

REPORT INFORMATION
  Report Type: Spontaneous
  Country: FR (occurrence: FR)
  Receive Date: 20140324
  Receipt Date: 20140324
  Transmission Date: 20141002
  Serious: Yes (Other)
  Sender: FDA-Public Use
  Company Number: FR-TEVA-412816ISR

PATIENT
  Sex: Female

DRUGS (1)
  1. FUROSEMIDE TEVA [Suspect]
     Dosage: 40 MILLIGRAM DAILY; TREATMENT STARTED MANY YEARS AGO
     Route: 048

REACTIONS (6)
  - Urinary retention [Recovered/Resolved]
  - Confusional state [Unknown]
  - Somnolence [Unknown]
  - Fatigue [Recovered/Resolved]
  - Cognitive disorder [Recovered/Resolved]
  - Confusional state [Recovered/Resolved]
